FAERS Safety Report 8709506 (Version 2)
Quarter: 2013Q4

REPORT INFORMATION
  Report Type: Spontaneous
  Country: BR (occurrence: BR)
  Receive Date: 20120806
  Receipt Date: 20131031
  Transmission Date: 20140711
  Serious: Yes (Other)
  Sender: FDA-Public Use
  Company Number: BR-009507513-1207BRA013036

PATIENT
  Age: 4 Year
  Sex: Male
  Weight: 17 kg

DRUGS (3)
  1. DESALEX [Suspect]
     Indication: INFLUENZA
     Dosage: 0.75 MG, ONCE
     Route: 048
     Dates: start: 20120728, end: 20120728
  2. DESALEX [Suspect]
     Indication: COUGH
  3. TEGRETOL [Concomitant]
     Indication: CONVULSION
     Dosage: 200 MG, QD
     Route: 048
     Dates: start: 201205

REACTIONS (5)
  - Convulsion in childhood [Recovered/Resolved]
  - Psychomotor hyperactivity [Recovered/Resolved]
  - Dry mouth [Recovered/Resolved]
  - Headache [Recovered/Resolved]
  - Off label use [Unknown]
